FAERS Safety Report 15134164 (Version 5)
Quarter: 2020Q2

REPORT INFORMATION
  Report Type: Report from Study
  Country: CA (occurrence: CA)
  Receive Date: 20180712
  Receipt Date: 20200520
  Transmission Date: 20200713
  Serious: Yes (Hospitalization, Other)
  Sender: FDA-Public Use
  Company Number: PHHY2011CA43185

PATIENT
  Age: 48 Year
  Sex: Female

DRUGS (13)
  1. SANDOSTATIN LAR DEPOT [Suspect]
     Active Substance: OCTREOTIDE ACETATE
     Dosage: 60 MG, Q3W  (EVERY 3 WEEKS)
     Route: 030
     Dates: start: 20160428, end: 20160509
  2. SANDOSTATIN [Suspect]
     Active Substance: OCTREOTIDE ACETATE
     Indication: NEUROENDOCRINE TUMOUR
     Dosage: 150 UG, BID FOR 2 WEEKS
     Route: 058
     Dates: start: 20110214
  3. SANDOSTATIN LAR DEPOT [Suspect]
     Active Substance: OCTREOTIDE ACETATE
     Dosage: 40 MG, Q3W  (EVERY 3 WEEKS)
     Route: 030
     Dates: start: 20120718, end: 20140211
  4. SANDOSTATIN LAR DEPOT [Suspect]
     Active Substance: OCTREOTIDE ACETATE
     Dosage: 30 MG, Q3W  (EVERY 3 WEEKS)
     Route: 030
     Dates: start: 20160407, end: 20160428
  5. SANDOSTATIN LAR DEPOT [Suspect]
     Active Substance: OCTREOTIDE ACETATE
     Dosage: 30 MG, Q3W  (EVERY 3 WEEKS)
     Route: 030
     Dates: start: 20110710, end: 20111012
  6. SANDOSTATIN LAR DEPOT [Suspect]
     Active Substance: OCTREOTIDE ACETATE
     Dosage: 40 MG, QMO
     Route: 030
     Dates: start: 20111012, end: 20120718
  7. SANDOSTATIN LAR DEPOT [Suspect]
     Active Substance: OCTREOTIDE ACETATE
     Dosage: 50 MG, Q3W  (EVERY 3 WEEKS)
     Route: 030
     Dates: start: 20140211, end: 20140710
  8. SANDOSTATIN LAR DEPOT [Suspect]
     Active Substance: OCTREOTIDE ACETATE
     Indication: NEUROENDOCRINE TUMOUR
     Dosage: 60 MG, Q3W (EVERY 3 WEEKS)
     Route: 030
     Dates: start: 20110214
  9. SANDOSTATIN LAR DEPOT [Suspect]
     Active Substance: OCTREOTIDE ACETATE
     Dosage: 60 MG, Q3W  (EVERY 3 WEEKS)
     Route: 030
     Dates: start: 20140710, end: 20150407
  10. SANDOSTATIN LAR DEPOT [Suspect]
     Active Substance: OCTREOTIDE ACETATE
     Dosage: 30 MG, QMO
     Route: 030
     Dates: start: 20110315, end: 20110710
  11. SANDOSTATIN LAR DEPOT [Suspect]
     Active Substance: OCTREOTIDE ACETATE
     Dosage: 60 MG, Q3W  (EVERY 3 WEEKS)
     Route: 030
     Dates: start: 20160818
  12. OCTREOTIDE. [Suspect]
     Active Substance: OCTREOTIDE
     Indication: PRODUCT USED FOR UNKNOWN INDICATION
     Dosage: UNK UNK, QD
     Route: 065
  13. SANDOSTATIN LAR DEPOT [Suspect]
     Active Substance: OCTREOTIDE ACETATE
     Dosage: 60 MG, QMO
     Route: 030
     Dates: start: 20160509, end: 20160818

REACTIONS (11)
  - Blood pressure increased [Unknown]
  - Flushing [Unknown]
  - Ear discomfort [Unknown]
  - Product dispensing error [Unknown]
  - Memory impairment [Unknown]
  - Diarrhoea [Unknown]
  - Dyspnoea [Unknown]
  - Dyspnoea exertional [Recovering/Resolving]
  - Pyrexia [Unknown]
  - Hepatic neoplasm [Unknown]
  - Inappropriate schedule of product administration [Unknown]

NARRATIVE: CASE EVENT DATE: 20140203
